FAERS Safety Report 4488011-1 (Version None)
Quarter: 2004Q4

REPORT INFORMATION
  Report Type: 
  Country: None (occurrence: None)
  Receive Date: 20041028
  Receipt Date: 20041020
  Transmission Date: 20050328
  Serious: Yes (Life-Threatening, Hospitalization, Disabling)
  Sender: FDA-Public Use
  Company Number: US-MERCK-0410USA03175

PATIENT
  Age: 69 Year
  Sex: Female

DRUGS (3)
  1. VIOXX [Suspect]
     Indication: ARTHRITIS
     Route: 048
     Dates: start: 19990101, end: 20030601
  2. EVISTA [Concomitant]
     Route: 065
  3. WELCHOL [Concomitant]
     Route: 065

REACTIONS (2)
  - CARDIAC ARREST [None]
  - ROTATOR CUFF SYNDROME [None]
